FAERS Safety Report 15137042 (Version 1)
Quarter: 2018Q3

REPORT INFORMATION
  Report Type: Spontaneous
  Country: US (occurrence: US)
  Receive Date: 20180712
  Receipt Date: 20180712
  Transmission Date: 20181010
  Serious: No
  Sender: FDA-Public Use
  Company Number: US-FOUNDATIONCONSUMERHC-2018-US-008627

PATIENT
  Age: 18 Year
  Sex: Female
  Weight: 57.61 kg

DRUGS (2)
  1. TAKE ACTION [Suspect]
     Active Substance: LEVONORGESTREL
     Indication: POST COITAL CONTRACEPTION
     Dosage: 1.5MG
     Route: 048
     Dates: start: 20180519, end: 20180519
  2. BIRTH CONTROL TABLET UNSPECIFIED [Concomitant]
     Dosage: EVERYDAY
     Route: 048

REACTIONS (5)
  - Dysmenorrhoea [Not Recovered/Not Resolved]
  - Intentional product misuse [Recovered/Resolved]
  - Abdominal pain [Unknown]
  - Abdominal rigidity [Not Recovered/Not Resolved]
  - Back pain [Not Recovered/Not Resolved]

NARRATIVE: CASE EVENT DATE: 201805
